FAERS Safety Report 22687717 (Version 7)
Quarter: 2023Q4

REPORT INFORMATION
  Report Type: Spontaneous
  Country: US (occurrence: US)
  Receive Date: 20230710
  Receipt Date: 20231009
  Transmission Date: 20240109
  Serious: Yes (Other)
  Sender: FDA-Public Use
  Company Number: US-PFIZER INC-202300240564

PATIENT
  Age: 49 Year
  Sex: Male
  Weight: 65.76 kg

DRUGS (4)
  1. GENOTROPIN [Suspect]
     Active Substance: SOMATROPIN
     Dosage: 0.4 MG, DAILY
     Dates: start: 2023
  2. VITAMIN C [Concomitant]
     Active Substance: ASCORBIC ACID
     Dosage: UNK
  3. ERGOCALCIFEROL [Concomitant]
     Active Substance: ERGOCALCIFEROL
     Dosage: UNK
  4. PROTEIN [Concomitant]
     Active Substance: PROTEIN
     Dosage: UNK (TONS)

REACTIONS (9)
  - Head injury [Unknown]
  - Illness [Unknown]
  - Body height decreased [Unknown]
  - Anxiety [Unknown]
  - Device breakage [Unknown]
  - Device physical property issue [Unknown]
  - Device issue [Unknown]
  - Device leakage [Unknown]
  - Device mechanical issue [Unknown]

NARRATIVE: CASE EVENT DATE: 20230101
